FAERS Safety Report 13179953 (Version 1)
Quarter: 2017Q1

REPORT INFORMATION
  Report Type: Spontaneous
  Country: IL (occurrence: IL)
  Receive Date: 20170202
  Receipt Date: 20170202
  Transmission Date: 20170428
  Serious: Yes (Other)
  Sender: FDA-Public Use
  Company Number: IL-BAYER-2017-013936

PATIENT
  Age: 92 Year
  Sex: Male

DRUGS (1)
  1. ASPIRIN 500 MG COATED TABLETS [Suspect]
     Active Substance: ASPIRIN
     Dosage: UNK

REACTIONS (2)
  - Blood creatinine abnormal [None]
  - Gastrointestinal haemorrhage [None]
